FAERS Safety Report 8786259 (Version 1)
Quarter: 2012Q4

REPORT INFORMATION
  Report Type: 
  Country: BR (occurrence: BR)
  Receive Date: 20120914
  Receipt Date: 20120914
  Transmission Date: 20130627
  Serious: Yes (Hospitalization)
  Sender: FDA-Public Use
  Company Number: PHHY2012BR078012

PATIENT
  Sex: Male
  Weight: 82 kg

DRUGS (17)
  1. DIOVAN HCT [Suspect]
     Indication: BLOOD PRESSURE INADEQUATELY CONTROLLED
     Dosage: 1 tablet per day
     Route: 048
  2. DIOVAN HCT [Suspect]
     Indication: CARDIOVASCULAR DISORDER
  3. ONBREZ [Suspect]
     Indication: EMPHYSEMA
     Dosage: one capsule at night
  4. ONBREZ [Suspect]
     Indication: DYSPNOEA
  5. ONBREZ [Suspect]
     Indication: RESPIRATORY DISORDER
  6. SIMVASTATIN [Suspect]
     Indication: BLOOD PRESSURE INADEQUATELY CONTROLLED
     Dosage: 40 mg, BID
     Route: 048
  7. MAREVAN [Concomitant]
     Indication: ANTICOAGULANT THERAPY
     Dosage: 0.5 DF per day
  8. COMBIVENT [Concomitant]
     Indication: DYSPNOEA
     Dosage: 0.04 mg daily
  9. SPIRIVA [Concomitant]
     Dosage: 1 DF, QD
  10. SERETIDE [Concomitant]
     Dosage: 1 DF, QD
  11. DILTIAZEM [Concomitant]
     Dosage: 1 tablet (90mg) per day
  12. DILTIAZEM [Concomitant]
     Dosage: 60 mg, UNK
  13. MOMETASONE FUROATE [Concomitant]
     Indication: EMPHYSEMA
     Dosage: 1 capsule at night
  14. MOMETASONE FUROATE [Concomitant]
     Indication: DYSPNOEA
  15. MOMETASONE FUROATE [Concomitant]
     Indication: RESPIRATORY DISORDER
  16. CLOPIDOGREL [Concomitant]
     Indication: BLOOD PRESSURE
     Dosage: UNK
  17. FUROSEMIDE [Concomitant]
     Dosage: 40 mg, UNK

REACTIONS (5)
  - Perforated ulcer [Recovering/Resolving]
  - Ulcer haemorrhage [Recovering/Resolving]
  - Anaemia [Recovering/Resolving]
  - Dyspnoea [Not Recovered/Not Resolved]
  - Oxygen saturation abnormal [Recovering/Resolving]
